FAERS Safety Report 4693366-9 (Version None)
Quarter: 2005Q2

REPORT INFORMATION
  Report Type: 
  Country: None (occurrence: None)
  Receive Date: 20050615
  Receipt Date: 20050603
  Transmission Date: 20051028
  Serious: Yes (Hospitalization)
  Sender: FDA-Public Use
  Company Number: 2005084488

PATIENT
  Age: 69 Year
  Sex: Male
  Weight: 77 kg

DRUGS (5)
  1. GEMFIBROZIL [Suspect]
     Indication: ILL-DEFINED DISORDER
     Dosage: ORAL
     Route: 048
     Dates: end: 20050529
  2. MIRALAX [Concomitant]
  3. MULTIVITAMIN [Concomitant]
  4. BACLOFEN [Concomitant]
  5. TAMSULOSIN HCL [Concomitant]

REACTIONS (1)
  - PANCYTOPENIA [None]
